FAERS Safety Report 18352611 (Version 2)
Quarter: 2021Q3

REPORT INFORMATION
  Report Type: Spontaneous
  Country: US (occurrence: US)
  Receive Date: 20201006
  Receipt Date: 20210726
  Transmission Date: 20211014
  Serious: Yes (Hospitalization)
  Sender: FDA-Public Use
  Company Number: US-ALLERGAN-2007500US

PATIENT
  Sex: Female

DRUGS (2)
  1. LINZESS [Suspect]
     Active Substance: LINACLOTIDE
     Indication: IRRITABLE BOWEL SYNDROME
     Dosage: UNK
     Dates: start: 201908
  2. BUPROPION. [Concomitant]
     Active Substance: BUPROPION
     Indication: ANXIETY

REACTIONS (12)
  - Candida infection [Unknown]
  - Inappropriate schedule of product administration [Unknown]
  - Dizziness postural [Not Recovered/Not Resolved]
  - Gastrointestinal motility disorder [Unknown]
  - Diarrhoea [Recovered/Resolved]
  - Therapeutic response decreased [Unknown]
  - Dizziness [Not Recovered/Not Resolved]
  - Abdominal pain upper [Not Recovered/Not Resolved]
  - Incorrect dose administered [Unknown]
  - Constipation [Not Recovered/Not Resolved]
  - Malaise [Not Recovered/Not Resolved]
  - Nausea [Not Recovered/Not Resolved]

NARRATIVE: CASE EVENT DATE: 202105
